FAERS Safety Report 8733942 (Version 2)
Quarter: 2013Q4

REPORT INFORMATION
  Report Type: Spontaneous
  Country: US (occurrence: US)
  Receive Date: 20120821
  Receipt Date: 20131107
  Transmission Date: 20140711
  Serious: Yes (Hospitalization)
  Sender: FDA-Public Use
  Company Number: US-ASTRAZENECA-2012SE56885

PATIENT
  Age: 62 Year
  Sex: Female
  Weight: 55.3 kg

DRUGS (13)
  1. SYMBICORT [Suspect]
     Indication: EMPHYSEMA
     Dosage: 160/4.5 MCG, 1 PUFF, TWO TIMES A DAY
     Route: 055
     Dates: start: 2013, end: 20131012
  2. SYMBICORT [Suspect]
     Indication: ASTHMA
     Dosage: 160/4.5 MCG, 1 PUFF, TWO TIMES A DAY
     Route: 055
     Dates: start: 2013, end: 20131012
  3. SYMBICORT [Suspect]
     Indication: CHRONIC OBSTRUCTIVE PULMONARY DISEASE
     Dosage: 160/4.5 MCG, 1 PUFF, TWO TIMES A DAY
     Route: 055
     Dates: start: 2013, end: 20131012
  4. SYMBICORT [Suspect]
     Indication: HYPERSENSITIVITY
     Dosage: 160/4.5 MCG, 1 PUFF, TWO TIMES A DAY
     Route: 055
     Dates: start: 2013, end: 20131012
  5. CRESTOR [Suspect]
     Indication: BLOOD CHOLESTEROL INCREASED
     Route: 048
  6. KLOZAPIN [Concomitant]
     Indication: TREMOR
  7. KLOZAPIN [Concomitant]
     Indication: ANXIETY
  8. LITHIUM [Concomitant]
     Indication: BIPOLAR DISORDER
     Dosage: UNKNOWN, BID
  9. ALBUTEROL [Concomitant]
     Indication: SUPPLEMENTATION THERAPY
  10. ASTHMANEX [Concomitant]
     Indication: SUPPLEMENTATION THERAPY
     Dosage: UNKNOWN, BID
  11. PROVENTIL [Concomitant]
     Dosage: UNKNOWN, BID
  12. SPIRIVA [Concomitant]
     Dosage: UNKNOWN, DAILY
  13. ALBUTEROL NEBULIZER [Concomitant]
     Dosage: UNKNOWN, DAILY

REACTIONS (16)
  - Psychotic disorder [Unknown]
  - Amnesia [Unknown]
  - Muscle spasms [Recovered/Resolved]
  - Poor quality sleep [Unknown]
  - Muscle spasms [Recovered/Resolved]
  - Muscle spasms [Recovered/Resolved]
  - Muscle spasms [Recovered/Resolved]
  - Pleurisy [Unknown]
  - Blood potassium increased [Unknown]
  - Drug hypersensitivity [Unknown]
  - Anxiety [Unknown]
  - Chronic obstructive pulmonary disease [Recovered/Resolved]
  - Dyspnoea [Unknown]
  - Body height decreased [Unknown]
  - Blood glucose fluctuation [Unknown]
  - Bipolar I disorder [Unknown]
